FAERS Safety Report 5369802-1 (Version None)
Quarter: 2007Q2

REPORT INFORMATION
  Report Type: 
  Country: None (occurrence: None)
  Receive Date: 20070620
  Receipt Date: 20070608
  Transmission Date: 20071010
  Serious: Yes (Other)
  Sender: FDA-Public Use
  Company Number: 2007323765

PATIENT
  Age: 5 Year
  Sex: Female
  Weight: 20.4119 kg

DRUGS (1)
  1. BENADRYL [Suspect]
     Indication: RASH
     Dosage: UNDER 2 TEASPOONS DAILY; ORAL
     Route: 048
     Dates: start: 20070606

REACTIONS (1)
  - BLOOD GLUCOSE INCREASED [None]
